FAERS Safety Report 8236468-2 (Version None)
Quarter: 2012Q1

REPORT INFORMATION
  Report Type: 
  Country: None (occurrence: None)
  Receive Date: 20120327
  Receipt Date: 20120319
  Transmission Date: 20120608
  Serious: Yes (Hospitalization)
  Sender: FDA-Public Use
  Company Number: US-US-EMD SERONO, INC.-7115035

PATIENT
  Sex: Female

DRUGS (12)
  1. LEXAPRO [Concomitant]
     Indication: DEPRESSION
  2. IRON [Concomitant]
     Indication: ROUTINE HEALTH MAINTENANCE
  3. REBIF [Suspect]
     Indication: RELAPSING-REMITTING MULTIPLE SCLEROSIS
     Route: 058
     Dates: start: 20081003, end: 20120201
  4. OXYBUTYNIN [Concomitant]
     Indication: BLADDER SPASM
  5. PRILOSEC [Concomitant]
  6. LISINOPRIL [Concomitant]
     Indication: HYPERTENSION
  7. LASIX [Concomitant]
  8. CALCIUM CARBONATE [Concomitant]
     Indication: ROUTINE HEALTH MAINTENANCE
  9. NITROSTAT [Concomitant]
     Indication: ANGINA PECTORIS
  10. VITAMIN B COMPLEX CAP [Concomitant]
     Indication: ROUTINE HEALTH MAINTENANCE
  11. NORVASC [Concomitant]
     Indication: ANGINA PECTORIS
  12. LIPITOR [Concomitant]

REACTIONS (4)
  - HYPERTENSION [None]
  - BRONCHIAL HYPERREACTIVITY [None]
  - PNEUMONIA [None]
  - CARDIAC FAILURE CONGESTIVE [None]
